FAERS Safety Report 19051272 (Version 1)
Quarter: 2021Q1

REPORT INFORMATION
  Report Type: Spontaneous
  Country: US (occurrence: US)
  Receive Date: 20210323
  Receipt Date: 20210323
  Transmission Date: 20210420
  Serious: Yes (Death)
  Sender: FDA-Public Use
  Company Number: None

PATIENT
  Age: 76 Year
  Sex: Male

DRUGS (1)
  1. TOBRAMYCIN NEB 300MG/5ML [Suspect]
     Active Substance: TOBRAMYCIN
     Dosage: OTHER   OTHER
     Dates: start: 2021

REACTIONS (1)
  - Death [None]

NARRATIVE: CASE EVENT DATE: 202103
